FAERS Safety Report 8502770-X (Version None)
Quarter: 2012Q2

REPORT INFORMATION
  Report Type: 
  Country: None (occurrence: None)
  Receive Date: 20120629
  Receipt Date: 20120619
  Transmission Date: 20120825
  Serious: Yes (Other)
  Sender: FDA-Public Use
  Company Number: DSA_58149_2012

PATIENT

DRUGS (3)
  1. LEUCOVORIN CALCIUM [Suspect]
     Indication: COLORECTAL CANCER
     Dosage: (100 MG/M2; WEEKLY INTRAVENOUS BOLUS)
     Route: 040
  2. FLUOROURACIL [Suspect]
     Indication: COLORECTAL CANCER
     Dosage: (450MG/M2; WEEKLY INTRAVENOUS BOLUS)
     Route: 040
  3. GEMCITABINE [Suspect]
     Indication: COLORECTAL CANCER
     Dosage: (900MG/M2; WEEKLY INTRAVENOUS (NOT OTHERWISE SPECIFIED))
     Route: 042

REACTIONS (1)
  - DEEP VEIN THROMBOSIS [None]
